FAERS Safety Report 8339687-X (Version None)
Quarter: 2012Q2

REPORT INFORMATION
  Report Type: 
  Country: None (occurrence: None)
  Receive Date: 20120507
  Receipt Date: 20120423
  Transmission Date: 20120825
  Serious: Yes (Other)
  Sender: FDA-Public Use
  Company Number: PHHY2011NL111969

PATIENT
  Sex: Female

DRUGS (6)
  1. DICLOFENAC [Concomitant]
  2. VALERIAN [Concomitant]
  3. OXAZEPAM [Concomitant]
  4. DIAZEPAM [Concomitant]
  5. OMEPRAZOLE [Concomitant]
  6. CARBAMAZEPINE [Suspect]
     Dosage: 300 MG, BID
     Route: 048
     Dates: start: 20070101

REACTIONS (4)
  - PETIT MAL EPILEPSY [None]
  - EAR DISCOMFORT [None]
  - ANXIETY [None]
  - HEADACHE [None]
